FAERS Safety Report 8080987-9 (Version None)
Quarter: 2012Q1

REPORT INFORMATION
  Report Type: 
  Country: None (occurrence: None)
  Receive Date: 20120130
  Receipt Date: 20120117
  Transmission Date: 20120608
  Serious: Yes (Hospitalization)
  Sender: FDA-Public Use
  Company Number: GB-JNJFOC-20110105633

PATIENT
  Sex: Female

DRUGS (2)
  1. ACETAMINOPHEN [Suspect]
     Indication: DYSMENORRHOEA
  2. ACETAMINOPHEN [Suspect]

REACTIONS (2)
  - HEPATOTOXICITY [None]
  - ACCIDENTAL OVERDOSE [None]
